FAERS Safety Report 8810386 (Version 1)
Quarter: 2012Q4

REPORT INFORMATION
  Report Type: 
  Country: VE (occurrence: VE)
  Receive Date: 20120926
  Receipt Date: 20120926
  Transmission Date: 20130627
  Serious: Yes (Death)
  Sender: FDA-Public Use
  Company Number: PHHY2011VE117334

PATIENT
  Sex: Male

DRUGS (7)
  1. TASIGNA [Suspect]
     Indication: CHRONIC MYELOID LEUKAEMIA
     Dosage: 400 mg, BID
     Route: 048
     Dates: start: 20071113
  2. ATOVAROL [Concomitant]
     Indication: HYPERLIPIDAEMIA
     Dosage: 8 mg, QD
     Route: 048
  3. NORVASC [Concomitant]
     Indication: HYPERTENSION
     Dosage: 10 mg, QD
     Dates: start: 20101014
  4. COZAAR [Concomitant]
     Indication: HYPERTENSION
     Dosage: 50 mg, UNK
     Route: 048
     Dates: start: 20101014
  5. ASAPROL [Concomitant]
     Indication: CEREBROVASCULAR ACCIDENT
     Dosage: 81 mg, UNK
     Route: 048
     Dates: start: 20101014
  6. PLAVIX [Concomitant]
     Indication: CEREBROVASCULAR ACCIDENT
     Dosage: 75 mg, daily
     Route: 048
     Dates: start: 20101014
  7. DIEUDRIN [Concomitant]
     Indication: HYPERTENSION
     Dosage: 25 mg, QD
     Route: 048
     Dates: start: 20101014

REACTIONS (4)
  - Cardiogenic shock [Fatal]
  - Cerebrovascular accident [Fatal]
  - Myocardial ischaemia [Fatal]
  - Chest pain [Fatal]
